FAERS Safety Report 16806769 (Version 1)
Quarter: 2019Q3

REPORT INFORMATION
  Report Type: Spontaneous
  Country: US (occurrence: US)
  Receive Date: 20190913
  Receipt Date: 20190913
  Transmission Date: 20191005
  Serious: No
  Sender: FDA-Public Use
  Company Number: US-BAYER-2019-163556

PATIENT
  Age: 99 Year
  Sex: Male

DRUGS (1)
  1. NUBEQA [Suspect]
     Active Substance: DAROLUTAMIDE
     Indication: PROSTATE CANCER
     Dosage: 300 MG, BID
     Route: 048
     Dates: start: 20190824, end: 20190826

REACTIONS (1)
  - Fatigue [None]

NARRATIVE: CASE EVENT DATE: 20190825
